FAERS Safety Report 5863926-8 (Version None)
Quarter: 2008Q3

REPORT INFORMATION
  Report Type: 
  Country: None (occurrence: None)
  Receive Date: 20080829
  Receipt Date: 20080821
  Transmission Date: 20090109
  Serious: Yes (Death)
  Sender: FDA-Public Use
  Company Number: US-JNJFOC-20080805830

PATIENT
  Sex: Female
  Weight: 96.16 kg

DRUGS (15)
  1. FLEXERIL [Suspect]
     Indication: DRUG USE FOR UNKNOWN INDICATION
  2. DURAGESIC-100 [Suspect]
     Indication: BACK PAIN
     Route: 062
  3. CYMBALTA [Concomitant]
     Route: 048
  4. PEPCID [Concomitant]
     Route: 048
  5. ECOFIBRAT [Concomitant]
     Route: 048
  6. FOLIC ACID [Concomitant]
     Route: 048
  7. MULTI-VITAMIN [Concomitant]
     Route: 048
  8. ZOCOR [Concomitant]
     Route: 048
  9. VITAMIN B [Concomitant]
     Route: 048
  10. KLONOPIN [Concomitant]
     Indication: ANXIETY
     Route: 048
  11. NEURONTIN [Concomitant]
     Route: 048
  12. LYRICA [Concomitant]
     Route: 048
  13. VISTARIL [Concomitant]
     Indication: ANXIETY
     Route: 048
  14. LITHIUM CARBONATE [Concomitant]
     Route: 048
  15. SORBITOL 70% [Concomitant]
     Route: 048

REACTIONS (2)
  - INCORRECT DRUG ADMINISTRATION DURATION [None]
  - OVERDOSE [None]
